FAERS Safety Report 23704995 (Version 1)
Quarter: 2024Q2

REPORT INFORMATION
  Report Type: Spontaneous
  Country: IN (occurrence: IN)
  Receive Date: 20240404
  Receipt Date: 20240404
  Transmission Date: 20240716
  Serious: Yes (Death, Life-Threatening, Hospitalization, Other)
  Sender: FDA-Public Use
  Company Number: IN-PIRAMAL PHARMA LIMITED-2024-PPL-000246

PATIENT

DRUGS (7)
  1. ISOFLURANE [Interacting]
     Active Substance: ISOFLURANE
     Indication: General anaesthesia
     Dosage: UNKNOWN
  2. KETOCONAZOLE [Interacting]
     Active Substance: KETOCONAZOLE
     Indication: Cushing^s syndrome
     Dosage: 1200 MILLIGRAM/DAY
  3. KETOCONAZOLE [Interacting]
     Active Substance: KETOCONAZOLE
     Dosage: LAST DOSE OF KETOCONAZOLE WAS THE NIGHT BEFORE SURGERY
  4. POTASSIUM [Concomitant]
     Active Substance: POTASSIUM
     Indication: Bronchial carcinoma
     Dosage: UNKNOWN
     Route: 048
  5. SPIRONOLACTONE [Concomitant]
     Active Substance: SPIRONOLACTONE
     Indication: Bronchial carcinoma
     Dosage: 200 MILLIGRAM/DAY
  6. SPIRONOLACTONE [Concomitant]
     Active Substance: SPIRONOLACTONE
     Indication: Blood pressure measurement
  7. HYDROCORTISONE [Concomitant]
     Active Substance: HYDROCORTISONE
     Indication: Product used for unknown indication
     Dosage: 50 MILLIGRAM/DAY

REACTIONS (5)
  - Acute hepatic failure [Fatal]
  - Abdominal pain upper [Fatal]
  - Haemorrhagic diathesis [Fatal]
  - Depressed level of consciousness [Fatal]
  - Drug interaction [Unknown]
